FAERS Safety Report 17551627 (Version 2)
Quarter: 2020Q3

REPORT INFORMATION
  Report Type: Spontaneous
  Country: US (occurrence: US)
  Receive Date: 20200317
  Receipt Date: 20200813
  Transmission Date: 20201102
  Serious: Yes (Other)
  Sender: FDA-Public Use
  Company Number: US-SA-2020SA066617

PATIENT

DRUGS (1)
  1. ZOLPIDEM TARTRATE. [Suspect]
     Active Substance: ZOLPIDEM TARTRATE
     Dosage: 10 MG, QD

REACTIONS (4)
  - Drug dependence [Unknown]
  - Feeling abnormal [Unknown]
  - Product dose omission issue [Unknown]
  - Insomnia [Unknown]
